FAERS Safety Report 4847457-X (Version None)
Quarter: 2005Q4

REPORT INFORMATION
  Report Type: 
  Country: None (occurrence: None)
  Receive Date: 20051205
  Receipt Date: 20051116
  Transmission Date: 20060501
  Serious: Yes (Congenital Anomaly)
  Sender: FDA-Public Use
  Company Number: 32510

PATIENT

DRUGS (8)
  1. BRINZOLAMIDE [Suspect]
     Indication: EYE DISORDER
     Dosage: 1 GTT BID
     Route: 064
     Dates: start: 20040101
  2. PHLOROGLUCINOL, TRIMETHYLPHLOROGLUCINOL [Concomitant]
  3. DIOSMINE [Concomitant]
  4. FERROUS SULFATE TAB [Concomitant]
  5. SODIUM FLUORIDE [Concomitant]
  6. ELEVIT [Concomitant]
  7. CARRAGHENATES, TITANE DIOXIDE, ZINC OXIDE [Concomitant]
  8. DRY EXTRACTS OF HAWTHRON [Concomitant]

REACTIONS (3)
  - CONGENITAL ANOMALY [None]
  - DRUG EXPOSURE DURING PREGNANCY [None]
  - POLYDACTYLY [None]
